FAERS Safety Report 12901586 (Version 4)
Quarter: 2017Q1

REPORT INFORMATION
  Report Type: Report from Study
  Country: EC (occurrence: EC)
  Receive Date: 20161102
  Receipt Date: 20170307
  Transmission Date: 20170428
  Serious: Yes (Hospitalization, Other)
  Sender: FDA-Public Use
  Company Number: EC-ROCHE-1849465

PATIENT
  Age: 59 Year
  Sex: Female

DRUGS (1)
  1. MABTHERA [Suspect]
     Active Substance: RITUXIMAB
     Indication: LEUKAEMIA
     Dosage: IN NOV/2016, SHE RECEIVED THE CHEMOTHERAPY
     Route: 042
     Dates: start: 2015

REACTIONS (8)
  - Inflammation [Recovering/Resolving]
  - Decreased immune responsiveness [Unknown]
  - Renal pain [Recovering/Resolving]
  - Burning sensation [Unknown]
  - Renal haemorrhage [Recovered/Resolved]
  - Chills [Unknown]
  - Renal disorder [Not Recovered/Not Resolved]
  - Haemorrhage [Recovering/Resolving]

NARRATIVE: CASE EVENT DATE: 201612
